FAERS Safety Report 14609629 (Version 1)
Quarter: 2018Q1

REPORT INFORMATION
  Report Type: Spontaneous
  Country: US (occurrence: US)
  Receive Date: 20180307
  Receipt Date: 20180307
  Transmission Date: 20180509
  Serious: No
  Sender: FDA-Public Use
  Company Number: US-ALLERGAN-1760962US

PATIENT
  Age: 48 Year
  Sex: Female

DRUGS (1)
  1. VIIBRYD [Suspect]
     Active Substance: VILAZODONE HYDROCHLORIDE
     Indication: MENOPAUSAL SYMPTOMS
     Dosage: 10 MG, QD
     Route: 048
     Dates: start: 20171010

REACTIONS (10)
  - Wrong technique in product usage process [Unknown]
  - Insomnia [Unknown]
  - Diarrhoea [Unknown]
  - Abdominal pain upper [Recovered/Resolved]
  - Nausea [Not Recovered/Not Resolved]
  - Headache [Recovered/Resolved]
  - Drug ineffective for unapproved indication [Unknown]
  - Feeling abnormal [Recovered/Resolved]
  - Off label use [Unknown]
  - Back pain [Recovered/Resolved]

NARRATIVE: CASE EVENT DATE: 201710
